FAERS Safety Report 7820914-X (Version None)
Quarter: 2011Q4

REPORT INFORMATION
  Report Type: 
  Country: None (occurrence: None)
  Receive Date: 20111018
  Receipt Date: 20111010
  Transmission Date: 20120403
  Serious: Yes (Death)
  Sender: FDA-Public Use
  Company Number: MX-GLAXOSMITHKLINE-A0949157A

PATIENT
  Age: 73 Year
  Sex: Female

DRUGS (2)
  1. UNKNOWN [Concomitant]
  2. PAROXETINE HCL [Suspect]
     Indication: DEPRESSION
     Dosage: 20MG PER DAY
     Route: 048
     Dates: start: 20090401, end: 20110901

REACTIONS (1)
  - DEATH [None]
